FAERS Safety Report 24180480 (Version 1)
Quarter: 2024Q3

REPORT INFORMATION
  Report Type: Spontaneous
  Country: US (occurrence: None)
  Receive Date: 20240806
  Receipt Date: 20240806
  Transmission Date: 20241016
  Serious: Yes (Hospitalization)
  Sender: Public
  Company Number: None

PATIENT
  Age: 60 Year
  Sex: Female

DRUGS (4)
  1. TADALAFIL [Suspect]
     Active Substance: TADALAFIL
  2. REMODULIN [Concomitant]
     Dosage: FREQUENCY : DAILY;?
     Route: 048
     Dates: start: 202307
  3. OPSUMIT [Concomitant]
  4. REMODULIN MDV [Concomitant]

REACTIONS (3)
  - Incorrect drug administration rate [None]
  - Adverse drug reaction [None]
  - Pulmonary hypertension [None]

NARRATIVE: CASE EVENT DATE: 20240803
